FAERS Safety Report 4321186-3 (Version None)
Quarter: 2004Q1

REPORT INFORMATION
  Report Type: 
  Country: None (occurrence: None)
  Receive Date: 20040322
  Receipt Date: 20030411
  Transmission Date: 20041129
  Serious: Yes (Other)
  Sender: FDA-Public Use
  Company Number: WAES 0304USA01364

PATIENT
  Age: 47 Year
  Sex: Male
  Weight: 100 kg

DRUGS (13)
  1. VICODIN [Concomitant]
  2. ALBUTEROL [Concomitant]
     Route: 055
  3. SOMA [Concomitant]
     Indication: BACK PAIN
     Route: 048
     Dates: start: 19990101, end: 20030101
  4. HYDROCHLOROTHIAZIDE [Concomitant]
     Route: 048
     Dates: start: 20011102
  5. HYDROCHLOROTHIAZIDE [Concomitant]
     Route: 048
     Dates: start: 20011130
  6. ATROVENT [Concomitant]
     Route: 055
     Dates: start: 20011102
  7. VIOXX [Suspect]
     Indication: BACK PAIN
     Route: 048
     Dates: start: 20020501, end: 20020901
  8. VIOXX [Suspect]
     Route: 048
     Dates: start: 20010803
  9. VIOXX [Suspect]
     Route: 048
     Dates: start: 20011102
  10. VIOXX [Suspect]
     Indication: INTERVERTEBRAL DISC DISORDER
     Route: 048
     Dates: start: 20020501, end: 20020901
  11. VIOXX [Suspect]
     Route: 048
     Dates: start: 20010803
  12. VIOXX [Suspect]
     Route: 048
     Dates: start: 20011102
  13. THEO-DUR [Concomitant]
     Route: 048
     Dates: end: 20011130

REACTIONS (8)
  - ABDOMINAL PAIN UPPER [None]
  - DIZZINESS [None]
  - DYSPEPSIA [None]
  - DYSPNOEA [None]
  - HYPERTENSION [None]
  - INJURY [None]
  - MYOCARDIAL INFARCTION [None]
  - TUBERCULOSIS [None]
